FAERS Safety Report 7320320-0 (Version None)
Quarter: 2011Q1

REPORT INFORMATION
  Report Type: 
  Country: None (occurrence: None)
  Receive Date: 20110228
  Receipt Date: 20110222
  Transmission Date: 20110831
  Serious: Yes (Hospitalization)
  Sender: FDA-Public Use
  Company Number: KR-ALLERGAN-1102497US

PATIENT
  Age: 41 Year
  Sex: Female

DRUGS (1)
  1. BOTOXA? [Suspect]
     Indication: SKIN WRINKLING
     Dosage: 24 UNITS, SINGLE
     Dates: start: 20110201, end: 20110201

REACTIONS (6)
  - DIZZINESS [None]
  - HYPERTENSION [None]
  - VOMITING [None]
  - DRUG INEFFECTIVE [None]
  - ARRHYTHMIA [None]
  - PAIN [None]
